FAERS Safety Report 7277552-X (Version None)
Quarter: 2011Q1

REPORT INFORMATION
  Report Type: 
  Country: None (occurrence: None)
  Receive Date: 20110207
  Receipt Date: 20110201
  Transmission Date: 20110831
  Serious: Yes (Death, Hospitalization)
  Sender: FDA-Public Use
  Company Number: BR-SANOFI-AVENTIS-2010SA077553

PATIENT
  Age: 71 Year
  Sex: Male

DRUGS (3)
  1. OPTIPEN [Suspect]
  2. LANTUS [Suspect]
     Route: 058
     Dates: start: 20050101, end: 20070101
  3. ALL OTHER THERAPEUTIC PRODUCTS [Concomitant]

REACTIONS (2)
  - INFARCTION [None]
  - PAIN [None]
